FAERS Safety Report 7225771-0 (Version None)
Quarter: 2011Q1

REPORT INFORMATION
  Report Type: 
  Country: None (occurrence: None)
  Receive Date: 20110110
  Receipt Date: 20110110
  Transmission Date: 20110831
  Serious: Yes (Life-Threatening)
  Sender: FDA-Public Use
  Company Number: None

PATIENT
  Age: 38 Year
  Sex: Male
  Weight: 109.7705 kg

DRUGS (2)
  1. PROLIXIN [Suspect]
     Indication: SCHIZOPHRENIA
     Dates: start: 20100921, end: 20101231
  2. FLUFENAZINE [Concomitant]

REACTIONS (4)
  - ARRHYTHMIA [None]
  - ELECTROCARDIOGRAM ABNORMAL [None]
  - PALPITATIONS [None]
  - BLOOD PRESSURE ABNORMAL [None]
